FAERS Safety Report 18122315 (Version 1)
Quarter: 2020Q3

REPORT INFORMATION
  Report Type: Spontaneous
  Country: US (occurrence: US)
  Receive Date: 20200807
  Receipt Date: 20200807
  Transmission Date: 20201103
  Serious: Yes (Other)
  Sender: FDA-Public Use
  Company Number: US-ABBVIE-20K-163-3504088-00

PATIENT
  Sex: Female

DRUGS (3)
  1. HUMIRA [Suspect]
     Active Substance: ADALIMUMAB
     Indication: JUVENILE IDIOPATHIC ARTHRITIS
     Route: 058
  2. ENBREL [Suspect]
     Active Substance: ETANERCEPT
     Indication: JUVENILE IDIOPATHIC ARTHRITIS
     Route: 058
  3. NAPROXEN. [Suspect]
     Active Substance: NAPROXEN
     Indication: JUVENILE IDIOPATHIC ARTHRITIS
     Route: 065

REACTIONS (12)
  - Polyarthritis [Unknown]
  - Joint swelling [Unknown]
  - Arthritis [Unknown]
  - Drug ineffective [Unknown]
  - Joint effusion [Unknown]
  - Scoliosis [Unknown]
  - Malaise [Unknown]
  - Limb mass [Unknown]
  - Dysphagia [Unknown]
  - Lyme disease [Unknown]
  - Fatigue [Unknown]
  - Loss of personal independence in daily activities [Unknown]
